FAERS Safety Report 8088698-0 (Version None)
Quarter: 2012Q1

REPORT INFORMATION
  Report Type: 
  Country: None (occurrence: None)
  Receive Date: 20120128
  Receipt Date: 20110607
  Transmission Date: 20120608
  Serious: No
  Sender: FDA-Public Use
  Company Number: US-ABBOTT-11P-163-0730772-00

PATIENT
  Age: 62 Year
  Sex: Female

DRUGS (17)
  1. LOPID [Concomitant]
     Indication: PRODUCT USED FOR UNKNOWN INDICATION
  2. MINOCYCLINE HCL [Concomitant]
     Indication: HIDRADENITIS
  3. COZAAR [Concomitant]
     Indication: HYPERTENSION
  4. HYDROCHLOROTHIAZIDE [Concomitant]
     Indication: HYPERTENSION
  5. OMEPRAZOLE [Concomitant]
     Indication: GASTROOESOPHAGEAL REFLUX DISEASE
  6. NEURONTIN [Concomitant]
     Indication: SCOLIOSIS
  7. CALCIUM [Concomitant]
     Indication: PRODUCT USED FOR UNKNOWN INDICATION
  8. PROVENTIL [Concomitant]
     Indication: ASTHMA
  9. VICODIN [Concomitant]
     Indication: ARTHRALGIA
  10. SINGULAIR [Concomitant]
     Indication: ASTHMA
  11. HUMIRA [Suspect]
     Indication: PSORIATIC ARTHROPATHY
     Dates: start: 20110601
  12. PERCOCET [Concomitant]
     Indication: ARTHRALGIA
  13. PAXIL [Concomitant]
     Indication: DEPRESSION
  14. ASPIRIN [Concomitant]
     Indication: PRODUCT USED FOR UNKNOWN INDICATION
  15. SYNTHROID [Concomitant]
     Indication: HYPOTHYROIDISM
  16. ZOCOR [Concomitant]
     Indication: BLOOD CHOLESTEROL INCREASED
  17. FISH OIL [Concomitant]
     Indication: PRODUCT USED FOR UNKNOWN INDICATION

REACTIONS (4)
  - HEADACHE [None]
  - GASTROOESOPHAGEAL REFLUX DISEASE [None]
  - LACERATION [None]
  - HAEMORRHAGE [None]
